FAERS Safety Report 7029331-6 (Version None)
Quarter: 2010Q4

REPORT INFORMATION
  Report Type: 
  Country: None (occurrence: None)
  Receive Date: 20101005
  Receipt Date: 20100923
  Transmission Date: 20110411
  Serious: Yes (Death, Other)
  Sender: FDA-Public Use
  Company Number: PHFR2010GB00628

PATIENT
  Sex: Female

DRUGS (5)
  1. ZOMETA [Suspect]
     Indication: METASTASES TO BONE
     Dosage: 3MG EVERY 8 WEEKS
     Route: 042
     Dates: start: 20080101
  2. PAMIDRONATE DISODIUM [Suspect]
     Indication: METASTASES TO BONE
     Dosage: 60MG EVERY 4 TO 8 WEEKS
     Route: 042
     Dates: start: 20010101, end: 20080101
  3. ALENDRONIC ACID [Concomitant]
     Indication: OSTEOPOROSIS
     Dosage: UNK
  4. CHEMOTHERAPEUTICS NOS [Concomitant]
     Indication: BREAST CANCER
  5. MST [Concomitant]
     Indication: PAIN
     Dosage: TWICE DAILY
     Route: 048

REACTIONS (2)
  - BREAST CANCER METASTATIC [None]
  - IMPAIRED HEALING [None]
